FAERS Safety Report 9551462 (Version 1)
Quarter: 2013Q3

REPORT INFORMATION
  Report Type: Spontaneous
  Country: FR (occurrence: FR)
  Receive Date: 20130925
  Receipt Date: 20130925
  Transmission Date: 20140515
  Serious: Yes (Other)
  Sender: FDA-Public Use
  Company Number: FR-ROCHE-1279459

PATIENT
  Age: 87 Year
  Sex: Female

DRUGS (5)
  1. LUCENTIS [Suspect]
     Indication: AGE-RELATED MACULAR DEGENERATION
     Route: 050
     Dates: start: 201203
  2. LUCENTIS [Suspect]
     Dosage: 5 INJECTIONS OF LUCENTIS IN TOTAL
     Route: 050
     Dates: start: 201204
  3. VASTAREL [Concomitant]
  4. NEBILOX [Concomitant]
     Route: 065
     Dates: end: 20130723
  5. NISIS [Concomitant]

REACTIONS (7)
  - Asphyxia [Not Recovered/Not Resolved]
  - Fibrin D dimer increased [Unknown]
  - Malaise [Not Recovered/Not Resolved]
  - Muscle tightness [Not Recovered/Not Resolved]
  - Hiatus hernia [Unknown]
  - Heart rate decreased [Unknown]
  - Blood pressure increased [Unknown]
